FAERS Safety Report 6102888-5 (Version None)
Quarter: 2009Q1

REPORT INFORMATION
  Report Type: 
  Country: None (occurrence: None)
  Receive Date: 20090303
  Receipt Date: 20090303
  Transmission Date: 20090719
  Serious: Yes (Other)
  Sender: FDA-Public Use
  Company Number: None

PATIENT
  Age: 33 Year
  Sex: Male
  Weight: 68.0396 kg

DRUGS (1)
  1. RELENZA [Suspect]
     Indication: INFLUENZA
     Dosage: 5MG 2X PER DAY INHAL
     Route: 055
     Dates: start: 20090226, end: 20090227

REACTIONS (2)
  - RASH [None]
  - SWELLING FACE [None]
